FAERS Safety Report 5376485-3 (Version None)
Quarter: 2007Q2

REPORT INFORMATION
  Report Type: 
  Country: None (occurrence: None)
  Receive Date: 20070628
  Receipt Date: 20070628
  Transmission Date: 20071010
  Serious: No
  Sender: FDA-Public Use
  Company Number: None

PATIENT
  Age: 54 Year
  Sex: Female

DRUGS (10)
  1. ISONIAZID [Suspect]
     Dates: start: 20060911, end: 20061106
  2. SYNTHROID [Concomitant]
  3. WELLBUTRIN XL [Concomitant]
  4. SPIRIVA [Concomitant]
  5. ALBUTEROL PRN [Concomitant]
  6. CHROMIUM PICOLINATE [Concomitant]
  7. COD LIVER OIL [Concomitant]
  8. ASCORBIC ACID [Concomitant]
  9. VITAMIN B COMPLEX CAP [Concomitant]
  10. MULTI-VITAMIN [Concomitant]

REACTIONS (1)
  - HEPATITIS [None]
